FAERS Safety Report 4908650-0 (Version None)
Quarter: 2006Q1

REPORT INFORMATION
  Report Type: 
  Country: None (occurrence: None)
  Receive Date: 20060210
  Receipt Date: 20050929
  Transmission Date: 20060701
  Serious: No
  Sender: FDA-Public Use
  Company Number: US-GLAXOSMITHKLINE-A0576419A

PATIENT
  Sex: Female

DRUGS (8)
  1. PAXIL CR [Suspect]
     Indication: DEPRESSION
     Dosage: 37.5MG PER DAY
     Route: 048
     Dates: start: 20050701
  2. PAROXETINE HCL [Suspect]
     Indication: DEPRESSION
     Dosage: 30MG PER DAY
     Route: 048
     Dates: start: 20020101
  3. LORAZEPAM [Concomitant]
  4. CLARITIN [Concomitant]
  5. FLONASE [Concomitant]
  6. GUAIFED [Concomitant]
  7. BIRTH CONTROL PILLS [Concomitant]
  8. SPIRONOLACTONE [Concomitant]

REACTIONS (3)
  - NERVOUSNESS [None]
  - SLEEP DISORDER [None]
  - TENSION [None]
